FAERS Safety Report 7854684 (Version 5)
Quarter: 2012Q4

REPORT INFORMATION
  Report Type: 
  Country: US (occurrence: US)
  Receive Date: 20110314
  Receipt Date: 20121101
  Transmission Date: 20130627
  Serious: Yes (Hospitalization, Other)
  Sender: FDA-Public Use
  Company Number: US-MERCK-1103USA00940

PATIENT

DRUGS (12)
  1. FOSAMAX [Suspect]
     Indication: OSTEOPENIA
     Dosage: 10 mg, UNK
     Route: 048
     Dates: start: 200111, end: 200201
  2. FOSAMAX [Suspect]
     Dosage: 70 mg, QW
     Route: 048
     Dates: start: 200202, end: 200307
  3. FOSAMAX [Suspect]
     Dosage: 70 mg, UNK
     Route: 048
     Dates: start: 200308, end: 200409
  4. FOSAMAX [Suspect]
     Dosage: 70 mg, UNK
     Route: 048
     Dates: start: 200410, end: 200509
  5. FOSAMAX [Suspect]
     Dosage: 70 mg, UNK
     Route: 048
     Dates: start: 200510, end: 200801
  6. FOSAMAX [Suspect]
     Indication: OSTEOPENIA
     Dosage: 70 mg, UNK
     Route: 048
     Dates: start: 200802, end: 201002
  7. PRILOSEC [Concomitant]
     Dates: start: 19990629, end: 2008
  8. MK-9278 [Concomitant]
  9. CALCIUM (UNSPECIFIED) [Concomitant]
     Dosage: 1200 mg, UNK
     Dates: start: 19970101
  10. GLUCOSAMINE [Concomitant]
     Dates: start: 1995, end: 2003
  11. FOSAMAX [Suspect]
     Dosage: 70 mg, UNK
     Route: 048
  12. ALENDRONATE TEVA [Suspect]
     Dosage: 70 mg, qw
     Route: 048

REACTIONS (18)
  - Femur fracture [Unknown]
  - Femur fracture [Unknown]
  - Carpal tunnel syndrome [Unknown]
  - Rotator cuff syndrome [Unknown]
  - Arthritis [Unknown]
  - Chronic obstructive pulmonary disease [Unknown]
  - Nodule [Unknown]
  - Actinic keratosis [Unknown]
  - Multiple lentigines syndrome [Unknown]
  - Nasal turbinate hypertrophy [Unknown]
  - Chronic sinusitis [Not Recovered/Not Resolved]
  - Infection [Unknown]
  - Electrocardiogram ST segment abnormal [Unknown]
  - Insomnia [Unknown]
  - Intervertebral disc protrusion [Unknown]
  - Urticaria [Unknown]
  - Drug ineffective [Unknown]
  - Abdominal discomfort [Unknown]
